FAERS Safety Report 11559754 (Version 1)
Quarter: 2015Q3

REPORT INFORMATION
  Report Type: Spontaneous
  Country: US (occurrence: None)
  Receive Date: 20150925
  Receipt Date: 20150925
  Transmission Date: 20151125
  Serious: Yes (Hospitalization)
  Sender: FDA-Public Use
  Company Number: None

PATIENT
  Age: 20 Year
  Sex: Male
  Weight: 63 kg

DRUGS (11)
  1. CYTARABINE. [Suspect]
     Active Substance: CYTARABINE
     Dates: end: 20080516
  2. THIOGUANINE (6-TG) [Suspect]
     Active Substance: THIOGUANINE
     Dates: end: 20080519
  3. DEXAMETHASONE. [Suspect]
     Active Substance: DEXAMETHASONE
     Dates: end: 20080920
  4. PEG-L-ASPARAGINASE (K-H) [Suspect]
     Active Substance: PEGASPARGASE
     Dates: end: 20110520
  5. DAUNORUBICIN [Concomitant]
     Active Substance: DAUNORUBICIN
     Dates: end: 20071023
  6. DOXORUBICIN [Suspect]
     Active Substance: DOXORUBICIN
     Dates: end: 20080415
  7. PREDNISONE. [Suspect]
     Active Substance: PREDNISONE
     Dates: end: 20110108
  8. CYCLOSPHAMIDE [Suspect]
     Active Substance: CYCLOPHOSPHAMIDE
     Dates: end: 20080513
  9. METHOTREXATE [Suspect]
     Active Substance: METHOTREXATE
     Dates: end: 20110129
  10. MERCAPTOPURINE. [Suspect]
     Active Substance: MERCAPTOPURINE
     Dates: end: 20110129
  11. VINCRISTINE SULFATE. [Suspect]
     Active Substance: VINCRISTINE SULFATE
     Dates: end: 20110104

REACTIONS (2)
  - Second primary malignancy [None]
  - Pancytopenia [None]

NARRATIVE: CASE EVENT DATE: 20150728
